FAERS Safety Report 23798743 (Version 2)
Quarter: 2024Q2

REPORT INFORMATION
  Report Type: Spontaneous
  Country: US (occurrence: US)
  Receive Date: 20240430
  Receipt Date: 20240521
  Transmission Date: 20240715
  Serious: No
  Sender: FDA-Public Use
  Company Number: US-MYLANLABS-2024M1029904

PATIENT
  Age: 80 Year
  Sex: Female

DRUGS (1)
  1. TYRVAYA [Suspect]
     Active Substance: VARENICLINE TARTRATE
     Indication: Dry eye
     Dosage: 0.03 MILLIGRAM, BID
     Route: 045
     Dates: start: 20240229

REACTIONS (9)
  - Eye irritation [Unknown]
  - Sneezing [Unknown]
  - Cough [Unknown]
  - Dyspnoea [Unknown]
  - Eye pain [Unknown]
  - Eye pruritus [Unknown]
  - Eye allergy [Unknown]
  - Dry eye [Unknown]
  - Adverse drug reaction [Unknown]

NARRATIVE: CASE EVENT DATE: 20240229
